FAERS Safety Report 10231639 (Version 2)
Quarter: 2014Q2

REPORT INFORMATION
  Report Type: Report from Study
  Country: US (occurrence: US)
  Receive Date: 20140611
  Receipt Date: 20140624
  Transmission Date: 20141212
  Serious: Yes (Other)
  Sender: FDA-Public Use
  Company Number: PHEH2014US011410

PATIENT
  Sex: Female
  Weight: 102.49 kg

DRUGS (24)
  1. GILENYA [Suspect]
     Indication: MULTIPLE SCLEROSIS
     Dosage: 0.5 MG, QD
     Route: 048
     Dates: start: 20140501
  2. ZOVIRAX [Concomitant]
     Dates: start: 20110204
  3. BETAMETHASONE DIPROPRIONATE [Concomitant]
     Dates: start: 20121113
  4. BUPROPION HCL ER [Concomitant]
     Dosage: 150 MG, QD
     Route: 048
     Dates: start: 20111219
  5. FIORICET [Concomitant]
     Indication: PAIN
     Dosage: 1 DF, 50-325-40 MG EVERY 4 TO 6 HRS AS NEEDED
     Route: 048
     Dates: start: 20101213
  6. CITALOPRAM HYDROBROMIDE [Concomitant]
     Dosage: 40 MG, DAILY
     Route: 048
     Dates: start: 20120224
  7. CLONIDINE HCL [Concomitant]
     Dosage: 0.1 MG, DAILY PRN
     Route: 048
     Dates: start: 20130417
  8. ARICEPT [Concomitant]
     Dosage: 10 MG, QD
     Route: 048
     Dates: start: 20110902
  9. GABAPENTIN [Concomitant]
     Dosage: 300 MG, TID
     Route: 048
     Dates: start: 20090701
  10. HYDROXYZINE HCL [Concomitant]
     Dosage: 25 MG, BID, PRN
     Route: 048
     Dates: start: 20130129
  11. IMIPRAMINE HCL [Concomitant]
     Dosage: 25 MG, BID
     Route: 048
     Dates: start: 20111101
  12. KLOR-CON M10 [Concomitant]
     Dosage: 10 MEQ, DAILY
     Route: 048
     Dates: start: 20110510
  13. LINDANE [Concomitant]
     Dates: start: 20130211
  14. LORAZEPAM [Concomitant]
     Dosage: 0.5 MG, TID, PRN
     Route: 048
     Dates: start: 20080611
  15. NAMENDA [Concomitant]
     Dosage: 10 MG, BID
     Route: 048
     Dates: start: 20130916
  16. NUVIGIL [Concomitant]
     Dosage: 150 MG, QD, MORNING
     Route: 048
     Dates: start: 20100818
  17. OMEPRAZOLE [Concomitant]
     Dosage: 40 MG, DAILY
     Route: 048
     Dates: start: 20100114
  18. PATADAY [Concomitant]
     Route: 047
     Dates: start: 20110520
  19. PERMETHRIN [Concomitant]
     Route: 061
     Dates: start: 20130211
  20. PREVIDENT [Concomitant]
     Dates: start: 20110826
  21. PROCHLORPERAZINE MALEATE [Concomitant]
     Dosage: 5 MG, Q12H
     Route: 048
     Dates: start: 20080703
  22. DIOVAN HCT [Concomitant]
     Dosage: 1 DF, QD, 320-12.5 MG
     Route: 048
     Dates: start: 20110510
  23. VITAMIN D [Concomitant]
     Dosage: 2000 U, QD
     Route: 048
     Dates: start: 20110317
  24. ZYRTEC ALLERGY [Concomitant]
     Dosage: 10 MG, QD, BEDTIME
     Route: 048
     Dates: start: 20120531

REACTIONS (7)
  - Blood pressure fluctuation [Not Recovered/Not Resolved]
  - Decreased appetite [Not Recovered/Not Resolved]
  - Body height decreased [Not Recovered/Not Resolved]
  - Hypophagia [Not Recovered/Not Resolved]
  - Thirst [Unknown]
  - Diarrhoea [Not Recovered/Not Resolved]
  - Abdominal discomfort [Not Recovered/Not Resolved]
